FAERS Safety Report 23623080 (Version 1)
Quarter: 2024Q1

REPORT INFORMATION
  Report Type: Spontaneous
  Country: US (occurrence: US)
  Receive Date: 20240312
  Receipt Date: 20240312
  Transmission Date: 20240409
  Serious: Yes (Other)
  Sender: FDA-Public Use
  Company Number: US-BAYER-2024A037232

PATIENT
  Age: 50 Year
  Sex: Female

DRUGS (3)
  1. ADEMPAS [Suspect]
     Active Substance: RIOCIGUAT
     Indication: Product used for unknown indication
     Dosage: UNK
  2. TREPROSTINIL SODIUM [Suspect]
     Active Substance: TREPROSTINIL SODIUM
     Indication: Pulmonary arterial hypertension
     Dosage: 0.1102 ?G/KG,
     Dates: start: 202112
  3. OPSUMIT [Concomitant]
     Active Substance: MACITENTAN

REACTIONS (2)
  - Blood pressure systolic decreased [None]
  - Product dose omission issue [None]

NARRATIVE: CASE EVENT DATE: 20240201
